FAERS Safety Report 4595980-8 (Version None)
Quarter: 2005Q1

REPORT INFORMATION
  Report Type: 
  Country: None (occurrence: None)
  Receive Date: 20050224
  Receipt Date: 20050224
  Transmission Date: 20050727
  Serious: Yes (Life-Threatening, Hospitalization, Other)
  Sender: FDA-Public Use
  Company Number: None

PATIENT
  Age: 32 Year
  Sex: Female
  Weight: 65.7716 kg

DRUGS (1)
  1. LEVAQUIN [Suspect]
     Indication: ASTHMA
     Dosage: 500MG  2XDAY ORAL
     Route: 048
     Dates: start: 20050130, end: 20050204

REACTIONS (13)
  - ASTHENIA [None]
  - BURNING SENSATION [None]
  - DISORIENTATION [None]
  - DIZZINESS [None]
  - DRUG HYPERSENSITIVITY [None]
  - DYSPNOEA [None]
  - FLUSHING [None]
  - HEART RATE INCREASED [None]
  - NAUSEA [None]
  - PAIN [None]
  - PALLOR [None]
  - PRURITUS [None]
  - RASH GENERALISED [None]
